FAERS Safety Report 19439217 (Version 1)
Quarter: 2021Q2

REPORT INFORMATION
  Report Type: Spontaneous
  Country: JP (occurrence: JP)
  Receive Date: 20210619
  Receipt Date: 20210619
  Transmission Date: 20210717
  Serious: Yes (Other)
  Sender: FDA-Public Use
  Company Number: JP-ACCORD-228332

PATIENT
  Age: 20 Month
  Sex: Female

DRUGS (9)
  1. GEMCITABINE/GEMCITABINE HYDROCHLORIDE [Suspect]
     Active Substance: GEMCITABINE\GEMCITABINE HYDROCHLORIDE
     Indication: METASTASES TO LYMPH NODES
     Dosage: 900 MG/M2 ON DAY 1 AND DAY 8 (4 COURSES)
  2. DOXORUBICIN [Concomitant]
     Active Substance: DOXORUBICIN
     Indication: RHABDOID TUMOUR OF THE KIDNEY
     Dosage: 1 COURSE
  3. VINCRISTINE [Concomitant]
     Active Substance: VINCRISTINE
     Indication: METASTASES TO LYMPH NODES
     Dosage: 1 COURSE
  4. VINCRISTINE [Concomitant]
     Active Substance: VINCRISTINE
     Indication: RHABDOID TUMOUR OF THE KIDNEY
     Dosage: 1 COURSE
  5. CYCLOPHOSPHAMIDE/CYCLOPHOSPHAMIDE MONOHYDRATE [Concomitant]
     Active Substance: CYCLOPHOSPHAMIDE
     Indication: RHABDOID TUMOUR OF THE KIDNEY
     Dosage: 1 COURSE
  6. DOXORUBICIN [Concomitant]
     Active Substance: DOXORUBICIN
     Indication: METASTASES TO LYMPH NODES
     Dosage: 1 COURSE
  7. DOCETAXEL. [Suspect]
     Active Substance: DOCETAXEL
     Indication: METASTASES TO LYMPH NODES
     Dosage: ON DAY 8 (4 COURSES)
  8. DOCETAXEL. [Suspect]
     Active Substance: DOCETAXEL
     Indication: RHABDOID TUMOUR OF THE KIDNEY
     Dosage: ON DAY 8 (4 COURSES)
  9. CYCLOPHOSPHAMIDE. [Concomitant]
     Active Substance: CYCLOPHOSPHAMIDE
     Indication: METASTASES TO LYMPH NODES
     Dosage: 1 COURSE

REACTIONS (1)
  - Haematotoxicity [Unknown]
